FAERS Safety Report 6887356-5 (Version None)
Quarter: 2010Q3

REPORT INFORMATION
  Report Type: 
  Country: None (occurrence: None)
  Receive Date: 20100730
  Receipt Date: 20090929
  Transmission Date: 20110219
  Serious: No
  Sender: FDA-Public Use
  Company Number: A0809549A

PATIENT
  Age: 38 Year
  Sex: Male

DRUGS (1)
  1. IMITREX [Suspect]
     Indication: CLUSTER HEADACHE
     Dosage: 100MG AS REQUIRED
     Route: 048
     Dates: start: 20090901, end: 20090929

REACTIONS (1)
  - DRUG INEFFECTIVE [None]
